FAERS Safety Report 16174895 (Version 2)
Quarter: 2019Q2

REPORT INFORMATION
  Report Type: Spontaneous
  Country: US (occurrence: US)
  Receive Date: 20190409
  Receipt Date: 20190417
  Transmission Date: 20190711
  Serious: Yes (Life-Threatening, Other)
  Sender: FDA-Public Use
  Company Number: US-PFIZER INC-2019146082

PATIENT
  Age: 13 Year
  Sex: Female

DRUGS (1)
  1. VERAPAMIL HCL [Suspect]
     Active Substance: VERAPAMIL HYDROCHLORIDE
     Dosage: 80 DF, UNK (80 TABLETS OF 240 MG)
     Route: 048

REACTIONS (5)
  - Intentional overdose [Recovered/Resolved]
  - Arrhythmia [Recovered/Resolved]
  - Myocardial stunning [Recovered/Resolved]
  - Vasoplegia syndrome [Recovered/Resolved]
  - Atrioventricular block complete [Recovered/Resolved]
